FAERS Safety Report 7881931-7 (Version None)
Quarter: 2011Q4

REPORT INFORMATION
  Report Type: 
  Country: None (occurrence: None)
  Receive Date: 20111101
  Receipt Date: 20110603
  Transmission Date: 20120403
  Serious: No
  Sender: FDA-Public Use
  Company Number: US-AMGEN-USASP2011022194

PATIENT
  Sex: Female

DRUGS (4)
  1. ENBREL [Suspect]
     Indication: PSORIATIC ARTHROPATHY
  2. SULFASALAZINE [Concomitant]
     Dosage: UNK
  3. ENBREL [Suspect]
  4. ENBREL [Suspect]
     Indication: PSORIASIS
     Dosage: 50 MG, 2 TIMES/WK
     Dates: start: 20110318

REACTIONS (4)
  - DRUG INEFFECTIVE [None]
  - ONYCHOMADESIS [None]
  - INJECTION SITE PAIN [None]
  - ONYCHOCLASIS [None]
